FAERS Safety Report 6875828-9 (Version None)
Quarter: 2010Q3

REPORT INFORMATION
  Report Type: 
  Country: None (occurrence: None)
  Receive Date: 20100727
  Receipt Date: 20100714
  Transmission Date: 20110219
  Serious: Yes (Hospitalization)
  Sender: FDA-Public Use
  Company Number: PHFR2010GB00669

PATIENT
  Sex: Male
  Weight: 60 kg

DRUGS (5)
  1. EXJADE [Suspect]
     Indication: THALASSAEMIA BETA
     Dosage: 20 MG / KG
  2. EXJADE [Suspect]
     Indication: HAEMOSIDEROSIS
     Dosage: 500 MG
     Route: 048
     Dates: start: 20100306, end: 20100329
  3. WARFARIN [Concomitant]
     Indication: PULMONARY EMBOLISM
     Dosage: UNK
     Route: 048
     Dates: start: 20080101
  4. PENICILLIN V [Concomitant]
     Indication: INFECTION PROPHYLAXIS
     Dosage: 500 MG
     Route: 048
  5. NOVOMIX 30 [Concomitant]
     Indication: DIABETES MELLITUS
     Dosage: 60 UNITS
     Route: 058

REACTIONS (8)
  - ABDOMINAL PAIN [None]
  - ALANINE AMINOTRANSFERASE INCREASED [None]
  - BLOOD ALKALINE PHOSPHATASE INCREASED [None]
  - BLOOD BILIRUBIN INCREASED [None]
  - CHEST PAIN [None]
  - DYSPNOEA [None]
  - LIVER FUNCTION TEST ABNORMAL [None]
  - NAUSEA [None]
